FAERS Safety Report 6693229-3 (Version None)
Quarter: 2010Q2

REPORT INFORMATION
  Report Type: 
  Country: None (occurrence: None)
  Receive Date: 20100421
  Receipt Date: 20100421
  Transmission Date: 20101027
  Serious: Yes (Life-Threatening, Hospitalization)
  Sender: FDA-Public Use
  Company Number: None

PATIENT
  Sex: Male
  Weight: 117.9352 kg

DRUGS (2)
  1. SOTALOL HCL [Suspect]
     Indication: ANXIETY
     Dosage: 160MG 1 INTRACARDIAC
     Route: 016
     Dates: start: 20040627, end: 20100415
  2. XANAX [Suspect]
     Indication: ATRIAL FIBRILLATION
     Dosage: 2MG 1 OTHER
     Route: 050
     Dates: start: 20070627, end: 20100415

REACTIONS (12)
  - ABDOMINAL DISTENSION [None]
  - ABDOMINAL PAIN [None]
  - DEPRESSION [None]
  - DIARRHOEA [None]
  - EPSTEIN-BARR VIRUS INFECTION [None]
  - EXERCISE TOLERANCE DECREASED [None]
  - FATIGUE [None]
  - HEART RATE DECREASED [None]
  - HYPERSOMNIA [None]
  - MALAISE [None]
  - NAUSEA [None]
  - OVERDOSE [None]
